FAERS Safety Report 7760976-1 (Version None)
Quarter: 2011Q3

REPORT INFORMATION
  Report Type: 
  Country: None (occurrence: None)
  Receive Date: 20110920
  Receipt Date: 20110913
  Transmission Date: 20111222
  Serious: Yes (Hospitalization)
  Sender: FDA-Public Use
  Company Number: US-BIOGENIDEC-2011BI023312

PATIENT
  Sex: Female

DRUGS (1)
  1. TYSABRI [Suspect]
     Indication: MULTIPLE SCLEROSIS
     Route: 042
     Dates: start: 20081014

REACTIONS (7)
  - NASAL SEPTAL OPERATION [None]
  - CONTUSION [None]
  - ABDOMINOPLASTY [None]
  - HERNIA [None]
  - TOE OPERATION [None]
  - HAEMORRHAGE [None]
  - SENSATION OF HEAVINESS [None]
